FAERS Safety Report 8966664 (Version 1)
Quarter: 2012Q4

REPORT INFORMATION
  Report Type: Spontaneous
  Country: BR (occurrence: None)
  Receive Date: 20121206
  Receipt Date: 20121206
  Transmission Date: 20130627
  Serious: Yes (Other)
  Sender: FDA-Public Use
  Company Number: DKLU1086760

PATIENT
  Age: 46 Year
  Sex: Male

DRUGS (5)
  1. ONFI [Suspect]
     Indication: EPILEPSY
     Route: 048
     Dates: start: 2009
  2. ONFI [Suspect]
     Indication: EPILEPSY
     Route: 048
  3. ONFI [Suspect]
     Indication: EPILEPSY
     Route: 048
  4. FLUOXETINE [Concomitant]
  5. CARBAMAZEPINE (CARBAMAZEPINE) (200 MG) [Concomitant]

REACTIONS (8)
  - Facial bones fracture [None]
  - Inappropriate schedule of drug administration [None]
  - Epilepsy [None]
  - Depression [None]
  - Disease recurrence [None]
  - Mood altered [None]
  - Drug ineffective [None]
  - Emotional disorder [None]
